FAERS Safety Report 9232048 (Version 2)
Quarter: 2013Q2

REPORT INFORMATION
  Report Type: Spontaneous
  Country: US (occurrence: US)
  Receive Date: 20130415
  Receipt Date: 20130423
  Transmission Date: 20140414
  Serious: No
  Sender: FDA-Public Use
  Company Number: US-PFIZER INC-2013113826

PATIENT
  Age: 64 Year
  Sex: Female
  Weight: 41.72 kg

DRUGS (4)
  1. SUTENT [Suspect]
     Indication: PANCREATIC NEUROENDOCRINE TUMOUR
     Dosage: 37.5 MG (3 CAPSULES OF 12.5MG), 1X/DAY
     Route: 048
     Dates: start: 20130403, end: 20130411
  2. SUTENT [Suspect]
     Indication: GASTROINTESTINAL STROMAL TUMOUR
  3. ALOE BARBADENSIS [Concomitant]
     Dosage: UNK
  4. ACTONEL [Concomitant]
     Indication: OSTEOPOROSIS
     Dosage: UNK

REACTIONS (3)
  - Constipation [Recovered/Resolved]
  - Gastrointestinal pain [Recovered/Resolved]
  - Drug intolerance [Unknown]
